FAERS Safety Report 20414332 (Version 2)
Quarter: 2022Q4

REPORT INFORMATION
  Report Type: Spontaneous
  Country: BE (occurrence: BE)
  Receive Date: 20220202
  Receipt Date: 20221122
  Transmission Date: 20230113
  Serious: Yes (Other)
  Sender: FDA-Public Use
  Company Number: BE-AMGEN-BELSP2022003323

PATIENT
  Age: 30 Year
  Sex: Male

DRUGS (5)
  1. CINACALCET [Suspect]
     Active Substance: CINACALCET
     Indication: Hypercalcaemia
     Dosage: UNK
     Route: 065
  2. CINACALCET [Suspect]
     Active Substance: CINACALCET
     Dosage: INCREASED TO MAXIMAL DOSE
     Route: 065
  3. CINACALCET [Suspect]
     Active Substance: CINACALCET
     Dosage: 90 MG, TWO TIMES A DAY (180) MG, ONCE A DAY (90 MILLIGRAM, BID )
     Route: 065
  4. XGEVA [Suspect]
     Active Substance: DENOSUMAB
     Indication: Hypercalcaemia
     Dosage: (RESTARTED)
     Route: 065
  5. XGEVA [Suspect]
     Active Substance: DENOSUMAB
     Dosage: 120 MILLIGRAM MONTHLY ONCE (120 MILLIGRAM, QMO )
     Route: 065

REACTIONS (8)
  - Parathyroid tumour malignant [Unknown]
  - Gastrointestinal disorder [Unknown]
  - Metastasis [Unknown]
  - Bone erosion [Unknown]
  - Hypercalcaemia [Unknown]
  - Nausea [Recovered/Resolved]
  - Sternal fracture [Unknown]
  - Drug ineffective [Unknown]
